FAERS Safety Report 6341906-6 (Version None)
Quarter: 2009Q3

REPORT INFORMATION
  Report Type: 
  Country: None (occurrence: None)
  Receive Date: 20090904
  Receipt Date: 20090903
  Transmission Date: 20100115
  Serious: Yes (Other)
  Sender: FDA-Public Use
  Company Number: GB-WYE-G04363609

PATIENT
  Age: 21 Year
  Sex: Male

DRUGS (9)
  1. TAZOCIN [Suspect]
     Indication: PNEUMONIA
     Route: 042
     Dates: start: 20090430, end: 20090503
  2. CYCLIZINE [Concomitant]
  3. TIZANIDINE HCL [Concomitant]
     Indication: CEREBRAL PALSY
  4. TIZANIDINE HCL [Concomitant]
  5. TIZANIDINE HCL [Concomitant]
  6. OXYBUTYNIN [Concomitant]
  7. PARACETAMOL [Concomitant]
  8. BISOPROLOL [Concomitant]
  9. EPILIM [Concomitant]
     Indication: EPILEPSY

REACTIONS (1)
  - MUSCULAR WEAKNESS [None]
